FAERS Safety Report 16699746 (Version 1)
Quarter: 2019Q3

REPORT INFORMATION
  Report Type: Spontaneous
  Country: US (occurrence: US)
  Receive Date: 20190813
  Receipt Date: 20190813
  Transmission Date: 20191004
  Serious: No
  Sender: FDA-Public Use
  Company Number: US-VIFOR (INTERNATIONAL) INC.-VIT-2019-07089

PATIENT
  Age: 70 Year
  Sex: Female

DRUGS (1)
  1. VELTASSA [Suspect]
     Active Substance: PATIROMER
     Indication: BLOOD POTASSIUM INCREASED
     Dosage: 5 OR 7 DAYS PER WEEK
     Route: 048
     Dates: start: 2019

REACTIONS (3)
  - Retching [Unknown]
  - Inappropriate schedule of product administration [Unknown]
  - Product preparation error [Unknown]

NARRATIVE: CASE EVENT DATE: 2019
